FAERS Safety Report 9373048 (Version 2)
Quarter: 2015Q4

REPORT INFORMATION
  Report Type: Report from Study
  Country: US (occurrence: US)
  Receive Date: 20130627
  Receipt Date: 20151012
  Transmission Date: 20160305
  Serious: Yes (Other)
  Sender: FDA-Public Use
  Company Number: US-ROCHE-1240183

PATIENT
  Age: 63 Year
  Sex: Male

DRUGS (17)
  1. ASA [Concomitant]
     Active Substance: ASPIRIN
  2. AUGMENTIN [Concomitant]
     Active Substance: AMOXICILLIN\CLAVULANATE POTASSIUM
  3. BACTRIM [Suspect]
     Active Substance: SULFAMETHOXAZOLE\TRIMETHOPRIM
     Indication: PRODUCT USED FOR UNKNOWN INDICATION
     Route: 065
  4. ALBUTEROL. [Concomitant]
     Active Substance: ALBUTEROL
  5. THEOPHYLLINE [Concomitant]
     Active Substance: THEOPHYLLINE ANHYDROUS
  6. LUPRON DEPOT [Concomitant]
     Active Substance: LEUPROLIDE ACETATE
  7. LEVAQUIN [Concomitant]
     Active Substance: LEVOFLOXACIN
  8. XOLAIR [Suspect]
     Active Substance: OMALIZUMAB
     Indication: DERMATITIS
  9. XOLAIR [Suspect]
     Active Substance: OMALIZUMAB
     Indication: RHINITIS ALLERGIC
  10. ATROVENT [Concomitant]
     Active Substance: IPRATROPIUM BROMIDE
  11. PULMICORT NEBULIZER [Concomitant]
  12. MONTELUKAST [Concomitant]
     Active Substance: MONTELUKAST SODIUM
  13. COUMADIN [Concomitant]
     Active Substance: WARFARIN SODIUM
  14. PREDNISONE. [Concomitant]
     Active Substance: PREDNISONE
     Route: 065
  15. SPIRONOLACTONE. [Concomitant]
     Active Substance: SPIRONOLACTONE
  16. XOLAIR [Suspect]
     Active Substance: OMALIZUMAB
     Indication: ASTHMA
     Route: 058
     Dates: start: 20101028
  17. LOVENOX 40 [Concomitant]

REACTIONS (22)
  - Hip arthroplasty [Unknown]
  - Nasal disorder [Unknown]
  - Otitis externa [Unknown]
  - Wheezing [Unknown]
  - Xerosis [Unknown]
  - Oedema [Unknown]
  - Gastrointestinal disorder [Unknown]
  - Osteoporosis [Unknown]
  - Vascular insufficiency [Unknown]
  - Respiratory disorder [Unknown]
  - Umbilical hernia [Unknown]
  - Lichenification [Unknown]
  - Hypersensitivity [Unknown]
  - Nasal turbinate abnormality [Unknown]
  - Fall [Unknown]
  - Deep vein thrombosis [Unknown]
  - Ear infection [Unknown]
  - Weight bearing difficulty [Unknown]
  - Prostate cancer metastatic [Unknown]
  - Nasal mucosal disorder [Unknown]
  - Erythema [Unknown]
  - Skin exfoliation [Unknown]

NARRATIVE: CASE EVENT DATE: 20110630
